FAERS Safety Report 23130711 (Version 2)
Quarter: 2024Q2

REPORT INFORMATION
  Report Type: Spontaneous
  Country: US (occurrence: US)
  Receive Date: 20231031
  Receipt Date: 20240410
  Transmission Date: 20240716
  Serious: Yes (Other)
  Sender: FDA-Public Use
  Company Number: US-BRISTOL-MYERS SQUIBB COMPANY-2023-152509

PATIENT
  Age: 62 Year
  Sex: Male

DRUGS (1)
  1. SPRYCEL [Suspect]
     Active Substance: DASATINIB
     Indication: Chronic myeloid leukaemia
     Route: 048
     Dates: start: 202206

REACTIONS (5)
  - Retinal tear [Recovered/Resolved]
  - Retinal haemorrhage [Recovered/Resolved]
  - Epistaxis [Unknown]
  - Retinal detachment [Recovered/Resolved]
  - Cataract [Not Recovered/Not Resolved]
